FAERS Safety Report 13969750 (Version 1)
Quarter: 2017Q3

REPORT INFORMATION
  Report Type: Spontaneous
  Country: GB (occurrence: GB)
  Receive Date: 20170914
  Receipt Date: 20170914
  Transmission Date: 20171128
  Serious: Yes (Life-Threatening, Hospitalization)
  Sender: FDA-Public Use
  Company Number: GB-PFIZER INC-2017392675

PATIENT
  Age: 45 Year
  Sex: Female
  Weight: 54.42 kg

DRUGS (6)
  1. SERTRALINE HCL [Suspect]
     Active Substance: SERTRALINE HYDROCHLORIDE
     Indication: DEPRESSION
     Dosage: 50 MG, UNK
     Route: 048
     Dates: start: 20160608, end: 20160702
  2. SERTRALINE HCL [Suspect]
     Active Substance: SERTRALINE HYDROCHLORIDE
     Dosage: 100 MG, UNK
     Route: 048
     Dates: start: 20160703, end: 20160709
  3. SERTRALINE HCL [Suspect]
     Active Substance: SERTRALINE HYDROCHLORIDE
     Dosage: 150 MG, UNK
     Route: 048
     Dates: start: 20160710, end: 20170210
  4. ATIVAN [Concomitant]
     Active Substance: LORAZEPAM
     Dosage: UNK
  5. SEROQUEL [Suspect]
     Active Substance: QUETIAPINE FUMARATE
     Dosage: UNK
  6. ZOPICLONE [Concomitant]
     Active Substance: ZOPICLONE
     Dosage: UNK

REACTIONS (4)
  - Akathisia [Recovered/Resolved]
  - Suicidal ideation [Unknown]
  - Metabolic disorder [Unknown]
  - Hallucinations, mixed [Unknown]

NARRATIVE: CASE EVENT DATE: 20160609
